FAERS Safety Report 4582392-6 (Version None)
Quarter: 2005Q1

REPORT INFORMATION
  Report Type: 
  Country: None (occurrence: None)
  Receive Date: 20050119
  Receipt Date: 20040224
  Transmission Date: 20050727
  Serious: Yes (Other)
  Sender: FDA-Public Use
  Company Number: US-JNJFOC-20040105984

PATIENT
  Age: 72 Year
  Sex: Female

DRUGS (4)
  1. DOXIL [Suspect]
     Indication: OVARIAN CANCER
     Dosage: 50 MG/M2, 1 IN 4 WEEK, INTRAVENOUS
     Route: 042
     Dates: start: 20021001, end: 20030301
  2. CELEBREX [Concomitant]
  3. TAMOXIFEN ( ) TAMOXIFEN [Concomitant]
  4. NALTREXONE HCL [Concomitant]

REACTIONS (4)
  - BLISTER [None]
  - DRUG ERUPTION [None]
  - OVARIAN CANCER [None]
  - PAIN [None]
